FAERS Safety Report 17971230 (Version 2)
Quarter: 2020Q3

REPORT INFORMATION
  Report Type: Report from Study
  Country: US (occurrence: US)
  Receive Date: 20200701
  Receipt Date: 20200929
  Transmission Date: 20201103
  Serious: Yes (Other)
  Sender: FDA-Public Use
  Company Number: US-ALLERGAN-2024292US

PATIENT
  Sex: Male

DRUGS (5)
  1. BIMATOPROST 0.015 MG INS (11048X) [Suspect]
     Active Substance: BIMATOPROST
     Indication: OPEN ANGLE GLAUCOMA
     Dosage: 15 ?G, SINGLE
     Route: 021
     Dates: start: 20200317, end: 20200317
  2. ADVIL [Concomitant]
     Active Substance: IBUPROFEN
     Indication: BACK PAIN
     Dosage: 400 MG, PRN
     Route: 048
     Dates: start: 1999
  3. HYDROCHOROTHIAZIDE [Concomitant]
     Active Substance: HYDROCHLOROTHIAZIDE
     Indication: HYPERTENSION
     Dosage: 25 MG, QD
     Route: 048
     Dates: start: 201610
  4. LISINOPRIL. [Concomitant]
     Active Substance: LISINOPRIL
     Indication: HYPERTENSION
     Dosage: 5 MG, QD
     Route: 048
     Dates: start: 2014
  5. BIMATOPROST 0.015 MG INS (11048X) [Suspect]
     Active Substance: BIMATOPROST
     Indication: OCULAR HYPERTENSION
     Dosage: 15 ?G, SINGLE
     Route: 021
     Dates: start: 20191016, end: 20191016

REACTIONS (1)
  - Corneal oedema [Not Recovered/Not Resolved]

NARRATIVE: CASE EVENT DATE: 20200612
